FAERS Safety Report 12497701 (Version 3)
Quarter: 2019Q1

REPORT INFORMATION
  Report Type: Spontaneous
  Country: DE (occurrence: DE)
  Receive Date: 20160625
  Receipt Date: 20190305
  Transmission Date: 20190417
  Serious: Yes (Hospitalization, Disabling, Other)
  Sender: FDA-Public Use
  Company Number: DE-ACCORD-041823

PATIENT
  Age: 71 Year
  Sex: Male

DRUGS (5)
  1. CARBOPLATIN. [Suspect]
     Active Substance: CARBOPLATIN
     Indication: METASTASIS
     Dosage: FIRST CYCLE ; CARBOPLATIN- AUC 5.?FOURTH AND FIFTH CYCLE
     Dates: start: 201408
  2. DOCETAXEL. [Suspect]
     Active Substance: DOCETAXEL
     Indication: METASTASIS
     Dosage: THREE APPLICATIONS IN THREE CONSECUTIVE WEEKS
     Dates: start: 201502
  3. CISPLATIN. [Suspect]
     Active Substance: CISPLATIN
     Indication: METASTASIS
  4. ALENDRONATE SODIUM/ALENDRONIC ACID [Suspect]
     Active Substance: ALENDRONATE SODIUM
     Indication: PRODUCT USED FOR UNKNOWN INDICATION
  5. PEMETREXED. [Suspect]
     Active Substance: PEMETREXED
     Indication: METASTASIS
     Dosage: ALSO RECEIVED 500 MG/M2 IN AUG-2014

REACTIONS (5)
  - Radiation skin injury [Recovered/Resolved]
  - Deafness [Unknown]
  - Superior vena cava syndrome [Unknown]
  - Hypersensitivity [Unknown]
  - Pneumonia [Unknown]
